FAERS Safety Report 10067473 (Version 1)
Quarter: 2014Q2

REPORT INFORMATION
  Report Type: Spontaneous
  Country: FR (occurrence: None)
  Receive Date: 20140407
  Receipt Date: 20140407
  Transmission Date: 20141212
  Serious: Yes (Hospitalization)
  Sender: FDA-Public Use
  Company Number: SYM-2014-19227

PATIENT
  Age: 86 Year
  Sex: Male

DRUGS (5)
  1. FLAGYL (METRONDIAZOLE) (METRONDIAZOLE) [Suspect]
     Indication: GASTROENTERITIS
     Route: 048
     Dates: start: 20140203, end: 20140205
  2. LASILIX FAIBLE [Suspect]
     Route: 048
     Dates: start: 20140205
  3. PREVISCAN [Suspect]
     Indication: PRODUCT USED FOR UNKNOWN INDICATION
     Route: 048
     Dates: start: 20140208
  4. COVERSYL (PERINDOPRIL  ERBUMINE) (PERINDOPRIL ERBUMINE) [Concomitant]
  5. PRAVADUAL (PRAVIGARD) (ACETYLSALICYLIC ACID, PRAVASTATIN SODIUM) [Concomitant]

REACTIONS (8)
  - International normalised ratio increased [None]
  - Renal failure acute [None]
  - General physical health deterioration [None]
  - Dehydration [None]
  - Vomiting [None]
  - Hypothermia [None]
  - Blood potassium decreased [None]
  - Leukocytosis [None]
